FAERS Safety Report 11029272 (Version 2)
Quarter: 2015Q2

REPORT INFORMATION
  Report Type: Report from Study
  Country: CA (occurrence: CA)
  Receive Date: 20150415
  Receipt Date: 20150522
  Transmission Date: 20150821
  Serious: Yes (Hospitalization)
  Sender: FDA-Public Use
  Company Number: CA-AMGEN-CANSL2015034842

PATIENT
  Age: 89 Year
  Sex: Male

DRUGS (1)
  1. PROLIA [Suspect]
     Active Substance: DENOSUMAB
     Indication: OSTEOPOROSIS POSTMENOPAUSAL
     Dosage: 60 MG, Q6MO
     Route: 058
     Dates: start: 20141104

REACTIONS (4)
  - Osteoarthritis [Unknown]
  - Osteitis deformans [Unknown]
  - Sleep disorder due to a general medical condition [Unknown]
  - Abasia [Unknown]

NARRATIVE: CASE EVENT DATE: 201503
